FAERS Safety Report 21810653 (Version 3)
Quarter: 2023Q1

REPORT INFORMATION
  Report Type: Spontaneous
  Country: PT (occurrence: PT)
  Receive Date: 20230103
  Receipt Date: 20230119
  Transmission Date: 20230418
  Serious: Yes (Hospitalization, Other)
  Sender: FDA-Public Use
  Company Number: PT-MYLANLABS-2022M1118422

PATIENT
  Age: 78 Year

DRUGS (1)
  1. LEVOFLOXACIN [Suspect]
     Active Substance: LEVOFLOXACIN
     Indication: Product used for unknown indication
     Dosage: 500 MILLIGRAM
     Route: 042

REACTIONS (4)
  - Oedema peripheral [Recovered/Resolved]
  - Purpura [Recovered/Resolved]
  - Cutaneous vasculitis [Recovered/Resolved]
  - Acute kidney injury [Unknown]
